FAERS Safety Report 24567444 (Version 1)
Quarter: 2024Q4

REPORT INFORMATION
  Report Type: Spontaneous
  Country: JP (occurrence: JP)
  Receive Date: 20241030
  Receipt Date: 20241030
  Transmission Date: 20250114
  Serious: Yes (Other)
  Sender: BRISTOL-MYERS SQUIBB COMPANY
  Company Number: JP-BRISTOL-MYERS SQUIBB COMPANY-2024-167837

PATIENT
  Age: 61 Year
  Sex: Female

DRUGS (1)
  1. BREYANZI [Suspect]
     Active Substance: LISOCABTAGENE MARALEUCEL
     Indication: Extranodal marginal zone B-cell lymphoma (MALT type)
     Dosage: IN APRIL OF YEAR X-1
     Route: 042

REACTIONS (1)
  - Inflammatory bowel disease [Unknown]
